FAERS Safety Report 4898728-2 (Version None)
Quarter: 2006Q1

REPORT INFORMATION
  Report Type: 
  Country: None (occurrence: None)
  Receive Date: 20060131
  Receipt Date: 20060119
  Transmission Date: 20060701
  Serious: Yes (Other)
  Sender: FDA-Public Use
  Company Number: 2006010896

PATIENT
  Sex: Male

DRUGS (1)
  1. ZOLOFT [Suspect]
     Indication: DEPRESSION
     Dosage: ORAL
     Route: 048

REACTIONS (8)
  - BIRTH TRAUMA [None]
  - CAESAREAN SECTION [None]
  - CONTUSION [None]
  - DRUG EXPOSURE DURING PREGNANCY [None]
  - FOETAL HEART RATE DECREASED [None]
  - HEAD INJURY [None]
  - JAUNDICE NEONATAL [None]
  - PSYCHOMOTOR HYPERACTIVITY [None]
